FAERS Safety Report 9396022 (Version 3)
Quarter: 2013Q3

REPORT INFORMATION
  Report Type: Spontaneous
  Country: DE (occurrence: DE)
  Receive Date: 20130711
  Receipt Date: 20130916
  Transmission Date: 20140515
  Serious: Yes (Hospitalization, Other)
  Sender: FDA-Public Use
  Company Number: DE-B.I. PHARMACEUTICALS,INC./RIDGEFIELD-2013-DE-01792DE

PATIENT
  Age: 75 Year
  Sex: Male
  Weight: 78 kg

DRUGS (4)
  1. PRADAXA [Suspect]
     Indication: ATRIAL FIBRILLATION
     Route: 048
     Dates: start: 201306
  2. OMEPRAZOLE 20 [Concomitant]
     Indication: ATRIAL PRESSURE INCREASED
     Route: 048
  3. VALSARTAN 160 [Concomitant]
     Indication: GASTRITIS
     Route: 048
  4. VALSARTAN 160 [Concomitant]
     Indication: REFLUX GASTRITIS

REACTIONS (5)
  - Haemoglobin decreased [Unknown]
  - Cardiac ablation [Not Recovered/Not Resolved]
  - Haematuria [Unknown]
  - Haemorrhage [Unknown]
  - Blood urine [Unknown]
